FAERS Safety Report 6789729-8 (Version None)
Quarter: 2010Q2

REPORT INFORMATION
  Report Type: 
  Country: None (occurrence: None)
  Receive Date: 20100624
  Receipt Date: 20100615
  Transmission Date: 20101027
  Serious: Yes (Hospitalization)
  Sender: FDA-Public Use
  Company Number: CH-ELI_LILLY_AND_COMPANY-CH201006004931

PATIENT
  Age: 82 Year
  Sex: Female

DRUGS (10)
  1. HUMALOG [Suspect]
     Dosage: UNK, UNKNOWN
     Route: 058
     Dates: start: 20100318, end: 20100318
  2. NOVORAPID [Concomitant]
     Dosage: UNK, UNKNOWN
     Route: 058
     Dates: end: 20100318
  3. ASPIRIN [Concomitant]
     Dosage: UNK, UNKNOWN
     Route: 065
  4. DILTIAZEM [Concomitant]
     Dosage: UNK, UNKNOWN
     Route: 065
  5. TOREM [Concomitant]
     Dosage: UNK, UNKNOWN
     Route: 048
  6. PANTOZOL [Concomitant]
     Dosage: UNK, UNKNOWN
     Route: 048
  7. NITRODERM [Concomitant]
     Dosage: UNK, UNKNOWN
     Route: 065
  8. ZOLPIDEM [Concomitant]
     Dosage: UNK, UNKNOWN
     Route: 065
  9. SEROQUEL [Concomitant]
     Dosage: UNK, UNKNOWN
     Route: 065
  10. KCL-ZYMA [Concomitant]
     Dosage: UNK, UNKNOWN
     Route: 065

REACTIONS (4)
  - COMA [None]
  - HYPOGLYCAEMIA [None]
  - MEDICATION ERROR [None]
  - OVERDOSE [None]
